FAERS Safety Report 19405047 (Version 1)
Quarter: 2021Q2

REPORT INFORMATION
  Report Type: Spontaneous
  Country: US (occurrence: US)
  Receive Date: 20210611
  Receipt Date: 20210611
  Transmission Date: 20210717
  Serious: Yes (Hospitalization)
  Sender: FDA-Public Use
  Company Number: None

PATIENT
  Age: 59 Year
  Sex: Female
  Weight: 95 kg

DRUGS (1)
  1. IODINE. [Suspect]
     Active Substance: IODINE

REACTIONS (3)
  - Anaphylactic reaction [None]
  - Cardiac arrest [None]
  - Contrast media reaction [None]
